FAERS Safety Report 4379159-0 (Version None)
Quarter: 2004Q2

REPORT INFORMATION
  Report Type: 
  Country: None (occurrence: None)
  Receive Date: 20040614
  Receipt Date: 20040603
  Transmission Date: 20050107
  Serious: Yes (Other)
  Sender: FDA-Public Use
  Company Number: STA-AE-04-MTX-249

PATIENT
  Age: 66 Year
  Sex: Male

DRUGS (9)
  1. METHOTREXATE [Suspect]
     Indication: RHEUMATOID ARTHRITIS
     Dosage: 17.5 MG 1X PER 1WK, ORAL
     Route: 048
     Dates: start: 20011019
  2. EMBREL (ETANERCEPT, INJECTION ) [Suspect]
     Indication: RHEUMATOID ARTHRITIS
     Dosage: 25 MG 2X PER 1 WK, SC
     Route: 058
     Dates: start: 20011009
  3. PREDNISONE TAB [Concomitant]
  4. ZOCOR [Concomitant]
  5. CELEXA [Concomitant]
  6. FOSAMAX [Concomitant]
  7. FOLIC ACID [Concomitant]
  8. CALCIUM (CALCIUM) [Concomitant]
  9. MULTIVIT (VITAMINS NOS) [Concomitant]

REACTIONS (1)
  - PROSTATE CANCER [None]
